FAERS Safety Report 12317815 (Version 1)
Quarter: 2016Q2

REPORT INFORMATION
  Report Type: Spontaneous
  Country: US (occurrence: None)
  Receive Date: 20160428
  Receipt Date: 20160428
  Transmission Date: 20160815
  Serious: Yes (Death)
  Sender: FDA-Public Use
  Company Number: None

PATIENT
  Age: 59 Year
  Sex: Female
  Weight: 97.5 kg

DRUGS (6)
  1. RITUXIMAB [Suspect]
     Active Substance: RITUXIMAB
     Dates: end: 20160323
  2. CYCLOPHOSPHAMIDE. [Suspect]
     Active Substance: CYCLOPHOSPHAMIDE
     Dates: end: 20160327
  3. DOXORUBICIN HYDROCHLORIDE. [Suspect]
     Active Substance: DOXORUBICIN HYDROCHLORIDE
     Dates: end: 20160326
  4. ETOPOSIDE. [Suspect]
     Active Substance: ETOPOSIDE
     Dates: end: 20160326
  5. PREDNISONE. [Suspect]
     Active Substance: PREDNISONE
     Dates: end: 20160327
  6. VINCRISTINE SULFATE. [Suspect]
     Active Substance: VINCRISTINE SULFATE
     Dates: end: 20160326

REACTIONS (5)
  - Mucosal inflammation [None]
  - Staphylococcal bacteraemia [None]
  - Cardiac arrest [None]
  - Disease complication [None]
  - Asthenia [None]

NARRATIVE: CASE EVENT DATE: 20160420
